FAERS Safety Report 8790732 (Version 1)
Quarter: 2012Q4

REPORT INFORMATION
  Report Type: Spontaneous
  Country: US (occurrence: None)
  Receive Date: 20120906
  Receipt Date: 20120906
  Transmission Date: 20130627
  Serious: Yes (Other)
  Sender: FDA-Public Use
  Company Number: TPA2012A05989

PATIENT
  Age: 48 Year
  Sex: Female
  Weight: 74.84 kg

DRUGS (1)
  1. PREVACID [Suspect]
     Indication: GERD
     Dosage: 30 mg, 2 in 1 d, per oral
     Route: 048
     Dates: start: 2004

REACTIONS (3)
  - Palpitations [None]
  - Insomnia [None]
  - Breast cancer [None]
